FAERS Safety Report 16347551 (Version 1)
Quarter: 2019Q2

REPORT INFORMATION
  Report Type: Report from Study
  Country: DE (occurrence: DE)
  Receive Date: 20190523
  Receipt Date: 20190523
  Transmission Date: 20190711
  Serious: Yes (Hospitalization, Other)
  Sender: FDA-Public Use
  Company Number: DE-MYLANLABS-2019M1046965

PATIENT
  Age: 66 Year
  Sex: Female
  Weight: 94 kg

DRUGS (15)
  1. TAXOTERE [Concomitant]
     Active Substance: DOCETAXEL
     Indication: BREAST CANCER
     Dosage: UNK
     Route: 065
     Dates: start: 20081020, end: 200902
  2. TRASTUZUMAB. [Suspect]
     Active Substance: TRASTUZUMAB
     Dosage: UNK, Q3W
     Route: 042
     Dates: start: 20111126
  3. DEXAMETHASON                       /00016001/ [Concomitant]
     Active Substance: DEXAMETHASONE
     Indication: PREMEDICATION
     Dosage: 16 MILLIGRAM
     Route: 065
  4. TRASTUZUMAB. [Suspect]
     Active Substance: TRASTUZUMAB
     Dosage: 565 MILLIGRAM
     Route: 050
     Dates: start: 20130304, end: 20130614
  5. INSULIN [Concomitant]
     Active Substance: INSULIN NOS
     Indication: DIABETES MELLITUS
     Dosage: UNK
  6. TRASTUZUMAB. [Suspect]
     Active Substance: TRASTUZUMAB
     Dosage: 6X
     Route: 042
     Dates: start: 20081020, end: 200902
  7. VINORELBINE [Concomitant]
     Active Substance: VINORELBINE\VINORELBINE TARTRATE
     Indication: BREAST CANCER
     Dosage: 112 MILLIGRAM
     Route: 065
     Dates: start: 20110726, end: 20111019
  8. TRASTUZUMAB. [Suspect]
     Active Substance: TRASTUZUMAB
     Indication: BREAST CANCER
     Dosage: 565 MILLIGRAM
     Route: 042
     Dates: start: 20130711, end: 20130912
  9. TRASTUZUMAB. [Suspect]
     Active Substance: TRASTUZUMAB
     Dosage: 565 MILLIGRAM
     Route: 042
     Dates: start: 20131009, end: 20131030
  10. INSULIN [Concomitant]
     Active Substance: INSULIN NOS
     Dosage: UNK
  11. TRASTUZUMAB. [Suspect]
     Active Substance: TRASTUZUMAB
     Dosage: UNK UNK, Q3W
     Route: 042
     Dates: start: 200905, end: 200910
  12. TRASTUZUMAB. [Suspect]
     Active Substance: TRASTUZUMAB
     Dosage: 540 MILLIGRAM, 3XW
     Route: 042
     Dates: start: 20110726, end: 20111019
  13. TRASTUZUMAB. [Suspect]
     Active Substance: TRASTUZUMAB
     Dosage: UNK, 3XW
     Route: 042
     Dates: end: 20130204
  14. TAVEGIL                            /00137201/ [Concomitant]
     Active Substance: CLEMASTINE FUMARATE
     Indication: PREMEDICATION
     Dosage: 2 MILLIGRAM
     Route: 065
  15. PACLITAXEL. [Concomitant]
     Active Substance: PACLITAXEL
     Indication: BREAST CANCER
     Dosage: UNK UNK, Q3MONTHS
     Route: 065
     Dates: start: 20130304, end: 20130614

REACTIONS (9)
  - Bronchial haemorrhage [Recovered/Resolved]
  - Chills [Unknown]
  - Malignant neoplasm progression [Unknown]
  - Anaphylactic shock [Unknown]
  - Vena cava thrombosis [Unknown]
  - Appendicitis perforated [Unknown]
  - Seizure [Unknown]
  - Pelvic venous thrombosis [Unknown]
  - Hypersensitivity [Recovered/Resolved]

NARRATIVE: CASE EVENT DATE: 20110623
